FAERS Safety Report 10233495 (Version 2)
Quarter: 2014Q2

REPORT INFORMATION
  Report Type: Spontaneous
  Country: TN (occurrence: None)
  Receive Date: 20140610
  Receipt Date: 20140627
  Transmission Date: 20141212
  Serious: Yes (Hospitalization)
  Sender: FDA-Public Use
  Company Number: TN-DEXPHARM-20140314

PATIENT
  Age: 34 Year
  Sex: Male

DRUGS (1)
  1. OMEPRAZOLE [Suspect]
     Dates: start: 20130310, end: 20130410

REACTIONS (4)
  - Pancreatitis acute [None]
  - Hypocalcaemia [None]
  - Confusional state [None]
  - Loss of consciousness [None]
